FAERS Safety Report 24207404 (Version 1)
Quarter: 2024Q3

REPORT INFORMATION
  Report Type: Spontaneous
  Country: GB (occurrence: GB)
  Receive Date: 20240813
  Receipt Date: 20240813
  Transmission Date: 20241017
  Serious: Yes (Other)
  Sender: BOEHRINGER INGELHEIM
  Company Number: GB-MHRA-TPP12381845C8371652YC1723460687713

PATIENT
  Age: 39 Year
  Sex: Female
  Weight: 100 kg

DRUGS (7)
  1. EMPAGLIFLOZIN [Suspect]
     Active Substance: EMPAGLIFLOZIN
     Indication: Ill-defined disorder
     Dates: start: 20240709
  2. CLARITHROMYCIN [Concomitant]
     Active Substance: CLARITHROMYCIN
     Indication: Ill-defined disorder
     Dosage: FOA-TPP YC - PLEASE RECLASSIFY
     Dates: start: 20240529, end: 20240612
  3. AQUEOUS [Concomitant]
     Indication: Ill-defined disorder
     Dosage: APPLY AS NEEDED OR SOAP SUBSTITUTE AND EMOLLIENT?FOA-TPP YC - PLEASE RECLASSIFY
     Dates: start: 20240628, end: 20240726
  4. BETAMETHASONE VALERATE [Concomitant]
     Active Substance: BETAMETHASONE VALERATE
     Indication: Ill-defined disorder
     Dosage: FOR SEVEN DAYS AT A TIME MAXIMUM, AND NOT TO USE ON FACE?FOA-TPP YC - PLEASE RECLASSIFY
     Dates: start: 20240628, end: 20240705
  5. ERYTHROMYCIN [Concomitant]
     Active Substance: ERYTHROMYCIN
     Indication: Ill-defined disorder
     Dosage: FOA-TPP YC - PLEASE RECLASSIFY
     Dates: start: 20240812
  6. VENLAFAXINE [Concomitant]
     Active Substance: VENLAFAXINE HYDROCHLORIDE
     Indication: Ill-defined disorder
     Dosage: FOA-TPP YC - PLEASE RECLASSIFY
     Dates: start: 20240319
  7. METFORMIN [Concomitant]
     Active Substance: METFORMIN HYDROCHLORIDE
     Indication: Ill-defined disorder
     Dosage: WITH MAIN MEAL?FOA-TPP YC - PLEASE RECLASSIFY
     Dates: start: 20240423

REACTIONS (3)
  - Ocular hyperaemia [Recovered/Resolved]
  - Paraesthesia [Recovered/Resolved]
  - Dizziness [Recovered/Resolved]
